FAERS Safety Report 8871526 (Version 5)
Quarter: 2013Q1

REPORT INFORMATION
  Report Type: Report from Study
  Country: BR (occurrence: BR)
  Receive Date: 20121029
  Receipt Date: 20130311
  Transmission Date: 20140127
  Serious: Yes (Hospitalization)
  Sender: FDA-Public Use
  Company Number: BR-ABBOTT-12P-020-0998139-00

PATIENT
  Age: 29 Year
  Sex: Male
  Weight: 64 kg

DRUGS (6)
  1. HUMIRA [Suspect]
     Indication: CROHN^S DISEASE
     Route: 058
     Dates: start: 201204
  2. HUMIRA [Suspect]
     Route: 058
  3. HUMIRA [Suspect]
     Route: 058
  4. HUMIRA [Suspect]
  5. MESALAZINE [Concomitant]
     Indication: CROHN^S DISEASE
     Dosage: 9 TABLETS DAILY
     Route: 048
     Dates: start: 201104
  6. AZATHIOPRINE [Concomitant]
     Indication: PRODUCT USED FOR UNKNOWN INDICATION
     Dosage: 3 TABLETS DAILY
     Route: 048
     Dates: start: 201104

REACTIONS (4)
  - Asthenia [Recovering/Resolving]
  - General physical health deterioration [Recovering/Resolving]
  - Crohn^s disease [Recovered/Resolved]
  - Anaemia [Unknown]
